FAERS Safety Report 5725694-X (Version None)
Quarter: 2008Q2

REPORT INFORMATION
  Report Type: 
  Country: None (occurrence: None)
  Receive Date: 20080501
  Receipt Date: 20080423
  Transmission Date: 20081010
  Serious: Yes (Hospitalization, Other)
  Sender: FDA-Public Use
  Company Number: BR-ABBOTT-08P-020-0448584-00

PATIENT
  Age: 36 Year
  Sex: Male

DRUGS (4)
  1. VALPROIC ACID [Suspect]
     Indication: BIPOLAR DISORDER
  2. VALPROIC ACID [Suspect]
  3. IAMOTRIGINE [Suspect]
     Indication: BIPOLAR DISORDER
  4. CLONAZEPAM [Concomitant]
     Indication: BIPOLAR DISORDER

REACTIONS (2)
  - DELIRIUM [None]
  - DRUG INTERACTION [None]
